FAERS Safety Report 4718289-8 (Version None)
Quarter: 2005Q3

REPORT INFORMATION
  Report Type: 
  Country: None (occurrence: None)
  Receive Date: 20050718
  Receipt Date: 20050718
  Transmission Date: 20060218
  Serious: Yes (Disabling)
  Sender: FDA-Public Use
  Company Number: None

PATIENT
  Age: 70 Year
  Sex: Female
  Weight: 74.8435 kg

DRUGS (2)
  1. CELEBREX [Suspect]
     Indication: ARTHRITIS
     Dosage: 200 MG    ONCE DAILY   ORAL
     Route: 048
     Dates: start: 20050510, end: 20050714
  2. CELEBREX [Suspect]
     Indication: OSTEOARTHRITIS
     Dosage: 200 MG    ONCE DAILY   ORAL
     Route: 048
     Dates: start: 20050510, end: 20050714

REACTIONS (2)
  - EYE DISORDER [None]
  - VENOUS OCCLUSION [None]
